FAERS Safety Report 9232258 (Version 1)
Quarter: 2013Q2

REPORT INFORMATION
  Report Type: Spontaneous
  Country: US (occurrence: US)
  Receive Date: 20130415
  Receipt Date: 20130415
  Transmission Date: 20140414
  Serious: No
  Sender: FDA-Public Use
  Company Number: US-009507513-2012SP032517

PATIENT
  Sex: 0

DRUGS (1)
  1. LOTRIMIN AF ATHLETE^S FOOT [Suspect]
     Indication: TINEA PEDIS
     Dosage: UNK UNK, UNKNOWN
     Route: 061

REACTIONS (2)
  - Condition aggravated [Not Recovered/Not Resolved]
  - No therapeutic response [Not Recovered/Not Resolved]
